FAERS Safety Report 7558270-7 (Version None)
Quarter: 2011Q2

REPORT INFORMATION
  Report Type: 
  Country: None (occurrence: None)
  Receive Date: 20110620
  Receipt Date: 20110606
  Transmission Date: 20111010
  Serious: Yes (Death, Hospitalization, Other)
  Sender: FDA-Public Use
  Company Number: DE-ACTELION-A-US2011-46588

PATIENT

DRUGS (9)
  1. TORSEMIDE [Concomitant]
  2. NEXIUM [Concomitant]
  3. ASPIRIN [Concomitant]
  4. ALLOPURINOL [Concomitant]
  5. SILDENAFIL CITRATE [Concomitant]
  6. SPIRIVA [Concomitant]
  7. TRACLEER [Concomitant]
     Indication: PULMONARY ARTERIAL HYPERTENSION
     Dosage: UNK
     Route: 048
     Dates: start: 20040916
  8. VENTAVIS [Suspect]
     Indication: PULMONARY ARTERIAL HYPERTENSION
     Dosage: 5 UG, 6 X DAY
     Route: 055
     Dates: start: 20070329
  9. METHIMAZOLE [Concomitant]

REACTIONS (12)
  - DYSPNOEA [None]
  - OEDEMA PERIPHERAL [None]
  - CARDIAC FAILURE [None]
  - BLOOD PRODUCT TRANSFUSION [None]
  - CYANOSIS [None]
  - PULMONARY ARTERIAL HYPERTENSION [None]
  - RENAL FAILURE [None]
  - DISEASE PROGRESSION [None]
  - CARDIAC ARREST [None]
  - TACHYPNOEA [None]
  - HAEMOGLOBIN DECREASED [None]
  - RENAL FUNCTION TEST ABNORMAL [None]
